FAERS Safety Report 8990844 (Version 1)
Quarter: 2012Q4

REPORT INFORMATION
  Report Type: 
  Country: FR (occurrence: FR)
  Receive Date: 20121231
  Receipt Date: 20121231
  Transmission Date: 20130627
  Serious: Yes (Hospitalization, Other)
  Sender: FDA-Public Use
  Company Number: PHHY2012FR120417

PATIENT
  Age: 55 Year
  Sex: Female

DRUGS (7)
  1. TAREG [Suspect]
     Indication: HYPERTENSION
     Dosage: UNK UKN, UNK
     Route: 048
     Dates: start: 2006, end: 200810
  2. SERETIDE [Concomitant]
  3. FLIXOTIDE [Concomitant]
  4. HYDROCORTISONE [Concomitant]
  5. PAROXETINE [Concomitant]
  6. TANAKAN [Concomitant]
  7. TEMESTA [Concomitant]

REACTIONS (3)
  - Angioedema [Recovered/Resolved]
  - Injury [Unknown]
  - Stress [Unknown]
